FAERS Safety Report 6885971-6 (Version None)
Quarter: 2010Q3

REPORT INFORMATION
  Report Type: 
  Country: None (occurrence: None)
  Receive Date: 20100729
  Receipt Date: 20080421
  Transmission Date: 20110219
  Serious: Yes (Other)
  Sender: FDA-Public Use
  Company Number: US-PFIZER INC-2008017376

PATIENT
  Sex: Male
  Weight: 80 kg

DRUGS (1)
  1. CELEBREX [Suspect]
     Indication: MUSCLE STRAIN
     Dates: start: 20080218, end: 20080220

REACTIONS (3)
  - ABDOMINAL PAIN UPPER [None]
  - DIARRHOEA [None]
  - FAECES DISCOLOURED [None]
